FAERS Safety Report 16980468 (Version 1)
Quarter: 2019Q4

REPORT INFORMATION
  Report Type: Spontaneous
  Country: US (occurrence: US)
  Receive Date: 20191031
  Receipt Date: 20191031
  Transmission Date: 20200122
  Serious: No
  Sender: FDA-Public Use
  Company Number: US-TEVA-2019-US-1129804

PATIENT
  Age: 75 Year
  Sex: Female

DRUGS (1)
  1. DILTIAZEM HYDROCHLORIDE TABLETS TEVA [Suspect]
     Active Substance: DILTIAZEM HYDROCHLORIDE
     Indication: BLOOD PRESSURE ABNORMAL
     Dates: start: 20191023, end: 20191023

REACTIONS (5)
  - Product substitution issue [Unknown]
  - Feeling abnormal [Recovered/Resolved]
  - Incorrect product formulation administered [Unknown]
  - Heart rate decreased [Recovered/Resolved]
  - Dizziness [Recovered/Resolved]

NARRATIVE: CASE EVENT DATE: 20191023
